FAERS Safety Report 7441003-2 (Version None)
Quarter: 2011Q2

REPORT INFORMATION
  Report Type: 
  Country: None (occurrence: None)
  Receive Date: 20110427
  Receipt Date: 20100116
  Transmission Date: 20111010
  Serious: Yes (Death, Hospitalization, Other)
  Sender: FDA-Public Use
  Company Number: US-BAYER-201011556NA

PATIENT
  Age: 56 Year
  Sex: Male
  Weight: 77.098 kg

DRUGS (23)
  1. TOPROL-XL [Concomitant]
     Route: 048
  2. DEMADEX [Concomitant]
     Dosage: 20 MG, UNK
     Route: 048
  3. MUCOMYST [Concomitant]
     Dosage: 6 DOSES PRE-HEART CATH.
     Route: 048
     Dates: start: 20030609
  4. INSULIN, REGULAR [INSULIN] [Concomitant]
     Dosage: UNK
     Route: 042
     Dates: start: 20030611
  5. MANNITOL [Concomitant]
     Dosage: UNK
     Route: 042
     Dates: start: 20030611
  6. RED BLOOD CELLS, CONCENTRATED [Concomitant]
     Dosage: 4 U, UNK
     Dates: start: 20030611
  7. INSULIN INJECTION [Concomitant]
     Route: 058
  8. PROTAMINE SULFATE [Concomitant]
     Dosage: UNK
     Route: 042
     Dates: start: 20030611
  9. VASOPRESSIN [VASOPRESSIN] [Concomitant]
     Dosage: UNK
     Route: 042
     Dates: start: 20030611
  10. FRESH FROZEN PLASMA [Concomitant]
     Dosage: 4 U, UNK
     Dates: start: 20030611
  11. TRASYLOL [Suspect]
     Dosage: 200 ML PRIME SOLUTION
     Route: 042
     Dates: start: 20030611, end: 20030611
  12. DOPAMINE HCL [Concomitant]
     Dosage: UNK
     Route: 042
     Dates: start: 20030611
  13. ANCEF [Concomitant]
     Dosage: UNK
     Route: 042
     Dates: start: 20030611
  14. CATAPRES [Concomitant]
     Route: 048
  15. PAVULON [Concomitant]
     Dosage: UNK
     Route: 042
     Dates: start: 20030611
  16. TRASYLOL [Suspect]
     Indication: CORONARY ARTERY BYPASS
     Dosage: 1 ML, ONCE (INITIAL)
     Route: 042
     Dates: start: 20030611, end: 20030611
  17. LASIX [Concomitant]
     Dosage: UNK
     Route: 042
     Dates: start: 20030611
  18. HEPARIN [Concomitant]
     Dosage: UNK
     Route: 042
     Dates: start: 20030611
  19. TRASYLOL [Suspect]
     Dosage: 50 ML/HR
     Route: 042
     Dates: start: 20030611, end: 20030611
  20. BUMEX [Concomitant]
     Route: 048
  21. GLUCOTROL [Concomitant]
     Dosage: 10 MG, UNK
     Route: 048
  22. VERSED [Concomitant]
     Dosage: UNK
     Route: 042
     Dates: start: 20030611
  23. ALBUMIN NOS [Concomitant]
     Dosage: UNK
     Route: 042
     Dates: start: 20030611

REACTIONS (14)
  - DEPRESSION [None]
  - RENAL FAILURE [None]
  - CEREBROVASCULAR ACCIDENT [None]
  - ANXIETY [None]
  - DEATH [None]
  - UNEVALUABLE EVENT [None]
  - ORGAN FAILURE [None]
  - CARDIAC DISORDER [None]
  - INJURY [None]
  - PAIN [None]
  - RENAL IMPAIRMENT [None]
  - RENAL INJURY [None]
  - FEAR [None]
  - ANHEDONIA [None]
